FAERS Safety Report 16779763 (Version 1)
Quarter: 2019Q3

REPORT INFORMATION
  Report Type: Spontaneous
  Country: US (occurrence: US)
  Receive Date: 20190906
  Receipt Date: 20190906
  Transmission Date: 20191005
  Serious: Yes (Hospitalization)
  Sender: FDA-Public Use
  Company Number: US-TARO PHARMACEUTICALS USA.,INC-2019SUN00435

PATIENT
  Age: 2 Year
  Sex: Female

DRUGS (5)
  1. MONOETHYLGLYCYLXYLIDIDE [Suspect]
     Active Substance: NORLIDOCAINE
     Indication: PRODUCT USED FOR UNKNOWN INDICATION
     Dosage: UNK
     Route: 065
  2. DIPHENHYDRAMINE. [Suspect]
     Active Substance: DIPHENHYDRAMINE
     Indication: PRODUCT USED FOR UNKNOWN INDICATION
     Dosage: UNK
     Route: 065
  3. ACETAMINOPHEN. [Suspect]
     Active Substance: ACETAMINOPHEN
     Indication: PRODUCT USED FOR UNKNOWN INDICATION
     Dosage: UNK
     Route: 065
  4. KETAMINE [Suspect]
     Active Substance: KETAMINE
     Indication: PRODUCT USED FOR UNKNOWN INDICATION
     Dosage: UNK
     Route: 065
  5. LIDOCAINE. [Suspect]
     Active Substance: LIDOCAINE
     Indication: PRODUCT USED FOR UNKNOWN INDICATION
     Dosage: UNK
     Route: 065

REACTIONS (8)
  - Seizure [Recovering/Resolving]
  - Hypoglycaemia [Recovered/Resolved]
  - Sinus tachycardia [Recovering/Resolving]
  - Lethargy [Recovering/Resolving]
  - Overdose [Unknown]
  - Vomiting [Recovering/Resolving]
  - Acute hepatic failure [Recovered/Resolved]
  - Speech disorder [Recovering/Resolving]
